FAERS Safety Report 8958895 (Version 1)
Quarter: 2012Q4

REPORT INFORMATION
  Report Type: 
  Country: US (occurrence: US)
  Receive Date: 20121211
  Receipt Date: 20121211
  Transmission Date: 20130627
  Serious: No
  Sender: FDA-Public Use
  Company Number: US-009507513-1212USA002852

PATIENT
  Age: 47 Year
  Sex: Female

DRUGS (3)
  1. SAPHRIS [Suspect]
     Indication: BIPOLAR DISORDER
     Dosage: 5 mg, qd
     Route: 060
     Dates: start: 2012, end: 2012
  2. SAPHRIS [Suspect]
     Dosage: 10 mg, qd
     Route: 060
     Dates: start: 2012, end: 2012
  3. AMARYL [Concomitant]
     Dosage: UNK

REACTIONS (1)
  - Blood glucose increased [Unknown]
